FAERS Safety Report 12615693 (Version 1)
Quarter: 2016Q3

REPORT INFORMATION
  Report Type: Spontaneous
  Country: US (occurrence: US)
  Receive Date: 20160802
  Receipt Date: 20160802
  Transmission Date: 20161109
  Serious: Yes (Hospitalization)
  Sender: FDA-Public Use
  Company Number: US-ASTRAZENECA-2016SE81724

PATIENT
  Age: 21 Year
  Sex: Male
  Weight: 68.5 kg

DRUGS (3)
  1. SEROQUEL XR [Suspect]
     Active Substance: QUETIAPINE FUMARATE
     Indication: SCHIZOPHRENIA
     Dosage: DOSE RANGED FROM 800 TO 900 MG
     Route: 048
     Dates: start: 1999, end: 2010
  2. SEROQUEL XR [Suspect]
     Active Substance: QUETIAPINE FUMARATE
     Indication: SCHIZOPHRENIA
     Route: 048
     Dates: start: 2011
  3. SEROQUEL XR [Suspect]
     Active Substance: QUETIAPINE FUMARATE
     Indication: SCHIZOPHRENIA
     Route: 048
     Dates: start: 201606, end: 20160712

REACTIONS (14)
  - Mood swings [Unknown]
  - Off label use [Unknown]
  - Insomnia [Unknown]
  - Paranoia [Unknown]
  - Dyspnoea [Unknown]
  - Abdominal pain upper [Unknown]
  - Tendon disorder [Unknown]
  - Intraocular pressure increased [Unknown]
  - Large intestine perforation [Unknown]
  - Muscle disorder [Unknown]
  - Memory impairment [Unknown]
  - Intentional product misuse [Unknown]
  - Tachyphrenia [Unknown]
  - Hunger [Unknown]

NARRATIVE: CASE EVENT DATE: 1999
